FAERS Safety Report 6075568-2 (Version None)
Quarter: 2009Q1

REPORT INFORMATION
  Report Type: 
  Country: None (occurrence: None)
  Receive Date: 20090121
  Receipt Date: 20071130
  Transmission Date: 20090719
  Serious: Yes (Other)
  Sender: FDA-Public Use
  Company Number: HQWYE779829JUN04

PATIENT
  Age: 61 Year
  Sex: Female

DRUGS (7)
  1. PREMPRO [Suspect]
  2. CYCRIN [Suspect]
  3. FEMHRT [Suspect]
  4. MEDROXYPROGESTERONE [Suspect]
  5. MEDROXYPROGESTERONE [Suspect]
  6. PREMARIN [Suspect]
  7. PROVERA [Suspect]

REACTIONS (3)
  - ARTHRALGIA [None]
  - BREAST CANCER [None]
  - COGNITIVE DISORDER [None]
